FAERS Safety Report 9423578 (Version 1)
Quarter: 2013Q3

REPORT INFORMATION
  Report Type: Report from Study
  Country: US (occurrence: US)
  Receive Date: 20130726
  Receipt Date: 20130726
  Transmission Date: 20140515
  Serious: Yes (Other)
  Sender: FDA-Public Use
  Company Number: US-ABBOTT-13P-163-1122159-00

PATIENT
  Age: 49 Year
  Sex: 0

DRUGS (3)
  1. HUMIRA [Suspect]
     Indication: ANKYLOSING SPONDYLITIS
  2. METHOTREXATE [Concomitant]
     Indication: ANKYLOSING SPONDYLITIS
  3. FOLIC ACID [Concomitant]
     Indication: ANKYLOSING SPONDYLITIS

REACTIONS (5)
  - Crohn^s disease [Not Recovered/Not Resolved]
  - Colectomy [Unknown]
  - Neck pain [Not Recovered/Not Resolved]
  - Back pain [Not Recovered/Not Resolved]
  - Spinal fusion acquired [Not Recovered/Not Resolved]
